FAERS Safety Report 14604228 (Version 2)
Quarter: 2018Q3

REPORT INFORMATION
  Report Type: Spontaneous
  Country: JP (occurrence: JP)
  Receive Date: 20180306
  Receipt Date: 20180718
  Transmission Date: 20181010
  Serious: Yes (Hospitalization, Other)
  Sender: FDA-Public Use
  Company Number: PHHY2018JP037171

PATIENT
  Sex: Female

DRUGS (13)
  1. AVASTIN [Concomitant]
     Active Substance: BEVACIZUMAB
     Dosage: 1020 MG, QD (TOTAL DOSE ADMINISTERED 16320)
     Route: 065
     Dates: start: 20161102, end: 20170222
  2. HYCAMTIN [Suspect]
     Active Substance: TOPOTECAN HYDROCHLORIDE
     Indication: OVARIAN CANCER
     Dosage: 1.25 MG/M2, QD (TOTAL ADMINISTERED DOSE 10 MG)
     Route: 042
     Dates: start: 20180115, end: 20180119
  3. HYCAMTIN [Suspect]
     Active Substance: TOPOTECAN HYDROCHLORIDE
     Dosage: UNK
     Route: 042
     Dates: start: 20180314
  4. HYCAMTIN [Suspect]
     Active Substance: TOPOTECAN HYDROCHLORIDE
     Dosage: UNK
     Route: 042
     Dates: start: 20180315
  5. PACLITAXEL. [Concomitant]
     Active Substance: PACLITAXEL
     Dosage: 290 MG, QD (TOTAL DOSE ADMINISTERED 1740 MG)
     Dates: start: 20161102, end: 20170222
  6. HYCAMTIN [Suspect]
     Active Substance: TOPOTECAN HYDROCHLORIDE
     Dosage: 1.0 MG/M2, QD
     Route: 042
     Dates: start: 20180219, end: 20180223
  7. CARBOPLATIN. [Concomitant]
     Active Substance: CARBOPLATIN
     Dosage: 740 MG, QD (TOTAL DOSE ADMINISTERED 4440MG)
     Route: 065
     Dates: start: 20161102, end: 20170222
  8. HYCAMTIN [Suspect]
     Active Substance: TOPOTECAN HYDROCHLORIDE
     Dosage: 1.6 MG, QD [TOTAL DOSE ADMINISTERED, 6.4 MG])
     Route: 042
     Dates: start: 20180313
  9. AVASTIN [Concomitant]
     Active Substance: BEVACIZUMAB
     Indication: PRODUCT USED FOR UNKNOWN INDICATION
     Dosage: 1020 MG, QD
     Route: 065
     Dates: start: 20180115, end: 20180312
  10. AVASTIN [Concomitant]
     Active Substance: BEVACIZUMAB
     Dosage: UNK
     Route: 065
     Dates: start: 20180312
  11. PACLITAXEL. [Concomitant]
     Active Substance: PACLITAXEL
     Indication: PRODUCT USED FOR UNKNOWN INDICATION
     Dosage: 287 MG,  (TOTAL ADMINISTERED DOSE 2583)
     Route: 065
     Dates: start: 20150513, end: 20160302
  12. CARBOPLATIN. [Concomitant]
     Active Substance: CARBOPLATIN
     Indication: PRODUCT USED FOR UNKNOWN INDICATION
     Dosage: 625 MG,  (TOTAL ADMINISTERED DOSE 5625 MG)
     Route: 065
     Dates: start: 20150513, end: 20160302
  13. DOXIL [Concomitant]
     Active Substance: DOXORUBICIN HYDROCHLORIDE
     Indication: PRODUCT USED FOR UNKNOWN INDICATION
     Dosage: 65 MG, QD (TOTAL ADMINISTERED 195)
     Route: 065

REACTIONS (6)
  - Febrile neutropenia [Recovered/Resolved]
  - Platelet count decreased [Recovered/Resolved]
  - Septic shock [Recovered/Resolved]
  - Pyelonephritis acute [Recovered/Resolved]
  - Pyelonephritis acute [Unknown]
  - Platelet count decreased [Recovered/Resolved]

NARRATIVE: CASE EVENT DATE: 201801
